FAERS Safety Report 4560731-X (Version None)
Quarter: 2005Q1

REPORT INFORMATION
  Report Type: 
  Country: None (occurrence: None)
  Receive Date: 20050121
  Receipt Date: 20050112
  Transmission Date: 20050727
  Serious: Yes (Other)
  Sender: FDA-Public Use
  Company Number: 2005-01-1039

PATIENT
  Age: 88 Year
  Sex: Female

DRUGS (4)
  1. GENTAMICIN [Suspect]
  2. SEROQUEL [Suspect]
     Dosage: 138 MG QD ORAL
     Route: 048
  3. ATIVAN [Concomitant]
  4. RISPERIDONE [Concomitant]

REACTIONS (8)
  - AGGRESSION [None]
  - CONDITION AGGRAVATED [None]
  - DEPRESSED LEVEL OF CONSCIOUSNESS [None]
  - DYSPNOEA [None]
  - DYSTONIA [None]
  - HYPOTENSION [None]
  - SPEECH DISORDER [None]
  - VISUAL DISTURBANCE [None]
